FAERS Safety Report 6194618-6 (Version None)
Quarter: 2009Q2

REPORT INFORMATION
  Report Type: 
  Country: None (occurrence: None)
  Receive Date: 20090519
  Receipt Date: 20090514
  Transmission Date: 20091009
  Serious: Yes (Other)
  Sender: FDA-Public Use
  Company Number: FR-BRISTOL-MYERS SQUIBB COMPANY-14593370

PATIENT
  Age: 70 Year
  Sex: Male
  Weight: 105 kg

DRUGS (1)
  1. COAPROVEL TABS 300MG/ 25MG [Suspect]
     Indication: HYPERTENSION
     Dosage: FORMULATION TABLET. COAPROVEL (IRBESARTAN 300 MG, HYDROCHLOROTHIAZIDE 25 MG).

REACTIONS (1)
  - MICROALBUMINURIA [None]
